FAERS Safety Report 17466951 (Version 2)
Quarter: 2020Q4

REPORT INFORMATION
  Report Type: Spontaneous
  Country: US (occurrence: US)
  Receive Date: 20200227
  Receipt Date: 20201113
  Transmission Date: 20210113
  Serious: No
  Sender: FDA-Public Use
  Company Number: US-BAYER-2020-034573

PATIENT
  Age: 9 Decade
  Sex: Female

DRUGS (1)
  1. MIRALAX [Suspect]
     Active Substance: POLYETHYLENE GLYCOL 3350
     Indication: LICE INFESTATION
     Route: 048

REACTIONS (2)
  - Product use in unapproved indication [None]
  - Incorrect dosage administered [Unknown]
